FAERS Safety Report 25653966 (Version 2)
Quarter: 2025Q3

REPORT INFORMATION
  Report Type: Spontaneous
  Country: US (occurrence: US)
  Receive Date: 20250807
  Receipt Date: 20250925
  Transmission Date: 20251021
  Serious: No
  Sender: SANOFI AVENTIS
  Company Number: US-SA-2025SA230161

PATIENT
  Sex: Female

DRUGS (8)
  1. DUPIXENT [Suspect]
     Active Substance: DUPILUMAB
     Indication: Asthma
     Dosage: 300 MG, QOW
     Route: 058
     Dates: start: 202309
  2. HUMAN IMMUNOGLOBULIN G [Suspect]
     Active Substance: HUMAN IMMUNOGLOBULIN G
     Route: 065
  3. CIMZIA [Concomitant]
     Active Substance: CERTOLIZUMAB PEGOL
     Indication: Rheumatoid arthritis
  4. ILARIS [Concomitant]
     Active Substance: CANAKINUMAB
  5. EPINEPHRINE [Concomitant]
     Active Substance: EPINEPHRINE
  6. ESTRADIOL [Concomitant]
     Active Substance: ESTRADIOL
  7. AZITHROMYCIN [Concomitant]
     Active Substance: AZITHROMYCIN
  8. PROGESTERONE [Concomitant]
     Active Substance: PROGESTERONE

REACTIONS (3)
  - Pain [Unknown]
  - Swelling [Unknown]
  - Asthma [Unknown]
